FAERS Safety Report 4649091-3 (Version None)
Quarter: 2005Q2

REPORT INFORMATION
  Report Type: 
  Country: None (occurrence: None)
  Receive Date: 20050429
  Receipt Date: 20050419
  Transmission Date: 20051028
  Serious: Yes (Other)
  Sender: FDA-Public Use
  Company Number: US-GLAXOSMITHKLINE-A0555261A

PATIENT
  Age: 43 Year
  Sex: Female

DRUGS (7)
  1. BUPROPION HCL [Suspect]
     Indication: MAJOR DEPRESSION
     Dosage: 300MG PER DAY
  2. LAMOTRIGINE [Suspect]
     Indication: BIPOLAR DISORDER
     Dates: start: 20020101
  3. AUGMENTIN '125' [Concomitant]
  4. EXCEDRIN (MIGRAINE) [Concomitant]
  5. ZYRTEC [Concomitant]
  6. MULTI-VITAMIN [Concomitant]
  7. FIBERCON [Concomitant]

REACTIONS (1)
  - ABORTION SPONTANEOUS [None]
